FAERS Safety Report 21757452 (Version 1)
Quarter: 2022Q4

REPORT INFORMATION
  Report Type: Report from Study
  Country: FR (occurrence: FR)
  Receive Date: 20221221
  Receipt Date: 20221221
  Transmission Date: 20230113
  Serious: Yes (Other)
  Sender: FDA-Public Use
  Company Number: FR-SUN PHARMACEUTICAL INDUSTRIES LTD-2022RR-369393

PATIENT
  Age: 36 Year
  Sex: Female

DRUGS (5)
  1. DOXORUBICIN HYDROCHLORIDE [Suspect]
     Active Substance: DOXORUBICIN HYDROCHLORIDE
     Indication: Endometrial cancer
     Dosage: UNK
     Route: 065
  2. PACLITAXEL [Suspect]
     Active Substance: PACLITAXEL
     Indication: Endometrial cancer
     Dosage: UNK
     Route: 065
  3. CARBOPLATIN [Suspect]
     Active Substance: CARBOPLATIN
     Indication: Endometrial cancer
     Dosage: UNK
     Route: 065
  4. PANITUMUMAB [Concomitant]
     Active Substance: PANITUMUMAB
     Indication: Endometrial cancer
     Dosage: UNK
     Route: 065
  5. COBIMETINIB [Concomitant]
     Active Substance: COBIMETINIB
     Indication: Endometrial cancer
     Dosage: UNK
     Route: 065

REACTIONS (2)
  - Disease progression [Unknown]
  - Metastasis [Unknown]
